FAERS Safety Report 22525595 (Version 1)
Quarter: 2023Q2

REPORT INFORMATION
  Report Type: Spontaneous
  Country: None (occurrence: CA)
  Receive Date: 20230606
  Receipt Date: 20230606
  Transmission Date: 20230722
  Serious: Yes (Other)
  Sender: FDA-Public Use
  Company Number: CA-B.Braun Medical Inc.-2142372

PATIENT
  Age: 51 Year
  Sex: Male

DRUGS (2)
  1. SODIUM CHLORIDE [Suspect]
     Active Substance: SODIUM CHLORIDE
     Indication: Drug hypersensitivity
     Route: 040
  2. REMICADE [Suspect]
     Active Substance: INFLIXIMAB

REACTIONS (5)
  - Abdominal pain [Recovered/Resolved]
  - Abscess rupture [Recovered/Resolved]
  - Anal abscess [Recovered/Resolved]
  - Drug hypersensitivity [Recovered/Resolved]
  - Renal pain [Recovered/Resolved]
